FAERS Safety Report 9095832 (Version 1)
Quarter: 2013Q1

REPORT INFORMATION
  Report Type: Spontaneous
  Country: GB (occurrence: GB)
  Receive Date: 20130219
  Receipt Date: 20130219
  Transmission Date: 20140127
  Serious: Yes (Disabling)
  Sender: FDA-Public Use
  Company Number: GB-UCBSA-078287

PATIENT
  Age: 35 Year
  Sex: Male

DRUGS (6)
  1. VIMPAT [Suspect]
     Indication: EPILEPSY
     Route: 048
     Dates: start: 2011, end: 2013
  2. CLOBAZAM [Concomitant]
     Dosage: UNKNOWN DOSE
  3. DIAZEPAM [Concomitant]
     Dosage: UNKNOWN DOSE
  4. LACTULOSE [Concomitant]
     Dosage: UNKNOWN DOSE
  5. MELATONIN [Concomitant]
     Dosage: UNKNOWN DOSE
  6. MOVICOL [Concomitant]
     Dosage: UNKNOWN DOSE

REACTIONS (7)
  - Confusional state [Recovering/Resolving]
  - Disorientation [Recovering/Resolving]
  - Mania [Recovering/Resolving]
  - Musculoskeletal stiffness [Recovering/Resolving]
  - Areflexia [Recovering/Resolving]
  - Screaming [Recovering/Resolving]
  - Self injurious behaviour [Recovering/Resolving]
